FAERS Safety Report 10094459 (Version 1)
Quarter: 2014Q2

REPORT INFORMATION
  Report Type: Spontaneous
  Country: DE (occurrence: DE)
  Receive Date: 20140422
  Receipt Date: 20140422
  Transmission Date: 20141212
  Serious: Yes (Life-Threatening, Hospitalization)
  Sender: FDA-Public Use
  Company Number: DE-ROCHE-1383627

PATIENT
  Age: 69 Year
  Sex: Male

DRUGS (9)
  1. MABTHERA [Suspect]
     Indication: CHRONIC LYMPHOCYTIC LEUKAEMIA
     Dosage: 9 ADMINISTRATIONS.
     Route: 042
     Dates: start: 20130605, end: 20131113
  2. CYCLOPHOSPHAMIDE [Concomitant]
     Indication: CHRONIC LYMPHOCYTIC LEUKAEMIA
     Route: 065
     Dates: start: 20130605
  3. DOXORUBICIN [Concomitant]
     Indication: CHRONIC LYMPHOCYTIC LEUKAEMIA
     Route: 065
     Dates: start: 20130605
  4. VINCRISTIN [Concomitant]
     Indication: CHRONIC LYMPHOCYTIC LEUKAEMIA
     Route: 065
     Dates: start: 20130605
  5. ELONTRIL [Concomitant]
  6. PREGABALIN [Concomitant]
  7. ALLOPURINOL [Concomitant]
     Route: 065
  8. MACROGOL [Concomitant]
  9. CALCIUM D3 [Concomitant]

REACTIONS (4)
  - Progressive multifocal leukoencephalopathy [Not Recovered/Not Resolved]
  - Hemiparesis [Not Recovered/Not Resolved]
  - Facial nerve disorder [Not Recovered/Not Resolved]
  - Aphasia [Not Recovered/Not Resolved]
